FAERS Safety Report 5969562-7 (Version None)
Quarter: 2008Q4

REPORT INFORMATION
  Report Type: 
  Country: None (occurrence: None)
  Receive Date: 20081126
  Receipt Date: 20080918
  Transmission Date: 20090506
  Serious: No
  Sender: FDA-Public Use
  Company Number: US-ABBOTT-08P-163-0476954-00

PATIENT
  Sex: Female
  Weight: 90.8 kg

DRUGS (3)
  1. SIMCOR [Suspect]
     Indication: BLOOD CHOLESTEROL INCREASED
     Dosage: 500MG/20MG
     Route: 048
     Dates: start: 20080911, end: 20080918
  2. VERAPAMIL [Concomitant]
     Indication: BLOOD PRESSURE
     Route: 048
  3. ADIPEX [Concomitant]
     Indication: WEIGHT DECREASED
     Route: 048

REACTIONS (7)
  - DIZZINESS [None]
  - ERYTHEMA [None]
  - FEELING HOT [None]
  - HEADACHE [None]
  - PARAESTHESIA [None]
  - SKIN WARM [None]
  - URTICARIA [None]
